FAERS Safety Report 7583139-1 (Version None)
Quarter: 2011Q2

REPORT INFORMATION
  Report Type: 
  Country: None (occurrence: None)
  Receive Date: 20110630
  Receipt Date: 20110616
  Transmission Date: 20111010
  Serious: Yes (Hospitalization)
  Sender: FDA-Public Use
  Company Number: GB-RANBAXY-2011R1-45565

PATIENT
  Age: 50 Year
  Sex: Female
  Weight: 46 kg

DRUGS (2)
  1. LOSARTAN POTASSIUM [Suspect]
     Indication: PRODUCT USED FOR UNKNOWN INDICATION
     Dosage: 104 TABLETS OF 160 MG
     Route: 065
  2. AMLODIPINE [Suspect]
     Indication: PRODUCT USED FOR UNKNOWN INDICATION
     Dosage: 77 TABLETS OF 10 MG
     Route: 065

REACTIONS (7)
  - RENAL IMPAIRMENT [None]
  - HYPERKALAEMIA [None]
  - OVERDOSE [None]
  - ANURIA [None]
  - METABOLIC ACIDOSIS [None]
  - PULMONARY OEDEMA [None]
  - HYPOTENSION [None]
